FAERS Safety Report 8738253 (Version 2)
Quarter: 2012Q4

REPORT INFORMATION
  Report Type: Spontaneous
  Country: US (occurrence: None)
  Receive Date: 20120806
  Receipt Date: 20120813
  Transmission Date: 20130627
  Serious: Yes (Hospitalization)
  Sender: FDA-Public Use
  Company Number: USA/USA/12/0025280

PATIENT
  Age: 47 Year
  Sex: Female
  Weight: 61.24 kg

DRUGS (1)
  1. OMEPRAZOLE MAGNESIUM [Suspect]
     Indication: PRODUCT USED FOR UNKNOWN INDICATION
     Dosage: 20.6 MG, ONCE
     Dates: start: 20120730

REACTIONS (5)
  - Swollen tongue [None]
  - Local swelling [None]
  - Hypersensitivity [None]
  - Mammogram abnormal [None]
  - Anxiety [None]
